FAERS Safety Report 25956945 (Version 1)
Quarter: 2025Q4

REPORT INFORMATION
  Report Type: Spontaneous
  Country: TW (occurrence: TW)
  Receive Date: 20251024
  Receipt Date: 20251024
  Transmission Date: 20260117
  Serious: Yes (Life-Threatening)
  Sender: SANDOZ
  Company Number: TW-SANDOZ-SDZ2025TW078626

PATIENT
  Age: 60 Year
  Sex: Male
  Weight: 69.5 kg

DRUGS (2)
  1. AMOXICILLIN\CLAVULANATE POTASSIUM [Suspect]
     Active Substance: AMOXICILLIN\CLAVULANATE POTASSIUM
     Indication: Pneumonia
     Dosage: 1.2 G, QD 500/100 MG,1000/200 MG (CONTENT-500.0 MG/1.0GM/ 119.2 MG/2 38.3M G) ONCE PER IMMEDIATE USE
     Route: 041
     Dates: start: 20251018, end: 20251018
  2. Acetal [Concomitant]
     Indication: Pyrexia
     Dosage: 500 MG, QD
     Route: 048
     Dates: start: 20251018, end: 20251018

REACTIONS (1)
  - Anaphylactic shock [Recovered/Resolved]

NARRATIVE: CASE EVENT DATE: 20251018
